FAERS Safety Report 4495144-2 (Version None)
Quarter: 2004Q4

REPORT INFORMATION
  Report Type: 
  Country: None (occurrence: None)
  Receive Date: 20041105
  Receipt Date: 20041105
  Transmission Date: 20050328
  Serious: Yes (Hospitalization)
  Sender: FDA-Public Use
  Company Number: None

PATIENT
  Age: 46 Year
  Sex: Female

DRUGS (2)
  1. RISPERDAL [Suspect]
     Dosage: 6 MG QHS (PO)
     Route: 048
     Dates: start: 20040616, end: 20041026
  2. CELEXA [Concomitant]

REACTIONS (3)
  - BLOOD GLUCOSE INCREASED [None]
  - BLOOD KETONE BODY PRESENT [None]
  - DIABETIC KETOACIDOSIS [None]
